FAERS Safety Report 18550456 (Version 3)
Quarter: 2020Q4

REPORT INFORMATION
  Report Type: Spontaneous
  Country: JP (occurrence: JP)
  Receive Date: 20201126
  Receipt Date: 20201216
  Transmission Date: 20210114
  Serious: Yes (Hospitalization, Other)
  Sender: FDA-Public Use
  Company Number: JP-ALLERGAN-2045571US

PATIENT

DRUGS (10)
  1. NEXIUM [Concomitant]
     Active Substance: ESOMEPRAZOLE MAGNESIUM
     Dosage: 20 MG, QD
     Route: 048
  2. BELSOMRA [Concomitant]
     Active Substance: SUVOREXANT
     Dosage: 15 MG, QD
     Route: 048
  3. MUCOSTA [Concomitant]
     Active Substance: REBAMIPIDE
     Dosage: 300 MG, QD
     Route: 048
  4. CILOSTAZOL. [Concomitant]
     Active Substance: CILOSTAZOL
     Dosage: 200 MG, BID
     Route: 048
  5. KEPPRA [Concomitant]
     Active Substance: LEVETIRACETAM
     Dosage: 1500 MG, BID
     Route: 048
  6. MERCAZOLE [Concomitant]
     Active Substance: CARBIMAZOLE
     Dosage: 5 MG, QD
     Route: 048
  7. LIORESAL [Concomitant]
     Active Substance: BACLOFEN
     Dosage: 5 MG, QD
     Route: 048
  8. KEPPRA [Concomitant]
     Active Substance: LEVETIRACETAM
     Dosage: 1000 MG, BID
     Route: 048
  9. CALONAL [Concomitant]
     Active Substance: ACETAMINOPHEN
     Indication: ANALGESIC THERAPY
     Dosage: 600 MG, QD
     Route: 048
  10. BOTOX [Suspect]
     Active Substance: ONABOTULINUMTOXINA
     Indication: MUSCLE SPASTICITY
     Dosage: 150 UNITS, SINGLE
     Route: 030
     Dates: start: 20201028, end: 20201028

REACTIONS (10)
  - Ear pain [Unknown]
  - Consciousness fluctuating [Unknown]
  - Gaze palsy [Unknown]
  - Excessive eye blinking [Unknown]
  - Depressed level of consciousness [Recovered/Resolved]
  - Headache [Recovered/Resolved]
  - Pyrexia [Unknown]
  - Seizure [Unknown]
  - Nausea [Unknown]
  - Back pain [Unknown]

NARRATIVE: CASE EVENT DATE: 20201102
